FAERS Safety Report 8891303 (Version 1)
Quarter: 2012Q4

REPORT INFORMATION
  Report Type: 
  Country: US (occurrence: US)
  Receive Date: 20121107
  Receipt Date: 20121107
  Transmission Date: 20130627
  Serious: Yes (Hospitalization, Disabling, Other)
  Sender: FDA-Public Use
  Company Number: US-009507513-0705USA01554

PATIENT

DRUGS (12)
  1. FOSAMAX [Suspect]
     Indication: OSTEOPOROSIS
     Dosage: UNK
     Route: 048
     Dates: start: 199802
  2. FOSAMAX [Suspect]
     Dosage: 70 mg, QW
     Route: 048
     Dates: end: 2004
  3. HORMONES (UNSPECIFIED) [Concomitant]
  4. CHOLEDYL [Concomitant]
     Indication: ASTHMA
     Dates: start: 1980
  5. THYROID [Concomitant]
     Indication: THYROIDITIS
     Dates: start: 19910101
  6. CYTOMEL [Concomitant]
     Dates: start: 2003
  7. MK-0168 [Concomitant]
     Indication: FACTOR III DEFICIENCY
     Dates: start: 1990
  8. COUMADIN [Concomitant]
     Indication: THROMBOPHLEBITIS
     Dates: start: 1997
  9. ALBUTEROL [Concomitant]
     Indication: ASTHMA
     Dosage: prn
     Route: 055
  10. DOXEPIN HYDROCHLORIDE [Concomitant]
     Indication: DEPRESSION
  11. ELAVIL [Concomitant]
     Indication: DEPRESSION
  12. PAMELOR [Concomitant]
     Indication: DEPRESSION

REACTIONS (91)
  - Pericarditis [Recovered/Resolved]
  - Pericarditis [Recovered/Resolved]
  - Pneumonia [Recovered/Resolved]
  - Pseudomonas infection [Recovering/Resolving]
  - Candidiasis [Unknown]
  - Device related infection [Unknown]
  - Cardiac tamponade [Recovered/Resolved]
  - Surgery [Unknown]
  - Ventricular tachycardia [Unknown]
  - Rhinoplasty [Unknown]
  - Cardiac pacemaker insertion [Unknown]
  - Cardiac operation [Unknown]
  - Conduction disorder [Unknown]
  - Foot operation [Recovered/Resolved]
  - Osteomyelitis [Not Recovered/Not Resolved]
  - Osteonecrosis of jaw [Not Recovered/Not Resolved]
  - Dysphagia [Recovering/Resolving]
  - Asthenia [Recovering/Resolving]
  - Headache [Unknown]
  - Retching [Unknown]
  - Anxiety [Not Recovered/Not Resolved]
  - Depression [Not Recovered/Not Resolved]
  - Ataxia [Unknown]
  - Fear [Not Recovered/Not Resolved]
  - Suicidal ideation [Not Recovered/Not Resolved]
  - Stress [Not Recovered/Not Resolved]
  - Frustration [Not Recovered/Not Resolved]
  - Anger [Not Recovered/Not Resolved]
  - Weight decreased [Unknown]
  - Vaginal infection [Unknown]
  - Peptic ulcer [Recovered/Resolved]
  - Liver disorder [Unknown]
  - Cardiac murmur [Unknown]
  - Melanosis coli [Unknown]
  - Meniscus injury [Unknown]
  - Carpal tunnel syndrome [Not Recovered/Not Resolved]
  - Neuropathy peripheral [Unknown]
  - Dry mouth [Unknown]
  - Cystitis noninfective [Not Recovered/Not Resolved]
  - Urinary tract infection [Not Recovered/Not Resolved]
  - Nocturia [Not Recovered/Not Resolved]
  - Gastrointestinal disorder [Unknown]
  - Dysphoria [Unknown]
  - Meniscus injury [Unknown]
  - Mitral valve prolapse [Unknown]
  - Ulcer [Unknown]
  - Bronchitis [Unknown]
  - Urinary sediment present [Unknown]
  - Leukocytosis [Unknown]
  - Leukopenia [Unknown]
  - Dyslipidaemia [Unknown]
  - Bundle branch block right [Unknown]
  - Arrhythmia [Unknown]
  - Pericoronitis [Unknown]
  - Chemical injury [Unknown]
  - Cystitis interstitial [Unknown]
  - Psychomotor hyperactivity [Unknown]
  - Adverse drug reaction [Unknown]
  - Helicobacter infection [Unknown]
  - Lyme disease [Unknown]
  - Ligament injury [Unknown]
  - Resorption bone increased [Unknown]
  - Mastication disorder [Unknown]
  - Sensitivity of teeth [Unknown]
  - Poor dental condition [Unknown]
  - Pulpitis dental [Unknown]
  - Bone marrow oedema [Unknown]
  - Oral pain [Unknown]
  - Thrombosis [Unknown]
  - Exostosis [Unknown]
  - Osteopenia [Unknown]
  - Tooth disorder [Unknown]
  - Insomnia [Unknown]
  - Drug intolerance [Unknown]
  - Insomnia [Not Recovered/Not Resolved]
  - Pain [Unknown]
  - Pain in jaw [Not Recovered/Not Resolved]
  - Arthralgia [Unknown]
  - Drug hypersensitivity [Unknown]
  - Vomiting [Unknown]
  - Nausea [Unknown]
  - Gastrooesophageal reflux disease [Unknown]
  - Gastritis [Unknown]
  - Dyspepsia [Unknown]
  - Constipation [Unknown]
  - Dizziness [Unknown]
  - Drug ineffective [Unknown]
  - Drug hypersensitivity [Unknown]
  - Drug ineffective [Unknown]
  - Drug ineffective [Unknown]
  - Gingival ulceration [Unknown]
